FAERS Safety Report 18786200 (Version 1)
Quarter: 2021Q1

REPORT INFORMATION
  Report Type: Spontaneous
  Country: CN (occurrence: CN)
  Receive Date: 20210126
  Receipt Date: 20210126
  Transmission Date: 20210419
  Serious: Yes (Other)
  Sender: FDA-Public Use
  Company Number: CN-ROCHE-2757026

PATIENT
  Age: 62 Year
  Sex: Male
  Weight: 66 kg

DRUGS (1)
  1. ALECENSA [Suspect]
     Active Substance: ALECTINIB HYDROCHLORIDE
     Indication: SMALL CELL LUNG CANCER
     Route: 048
     Dates: start: 20200601

REACTIONS (3)
  - Diabetes mellitus [Recovering/Resolving]
  - Intentional product use issue [Unknown]
  - Off label use [Unknown]

NARRATIVE: CASE EVENT DATE: 20200605
